FAERS Safety Report 9911531 (Version 1)
Quarter: 2014Q1

REPORT INFORMATION
  Report Type: Spontaneous
  Country: US (occurrence: US)
  Receive Date: 20140219
  Receipt Date: 20140219
  Transmission Date: 20141002
  Serious: Yes (Hospitalization, Other)
  Sender: FDA-Public Use
  Company Number: PHEH2014US003021

PATIENT
  Sex: Female

DRUGS (1)
  1. TEKTURNA [Suspect]

REACTIONS (20)
  - Nausea [Unknown]
  - Vomiting [Unknown]
  - Fatigue [Unknown]
  - Movement disorder [Unknown]
  - Tremor [Unknown]
  - Hyperhidrosis [Unknown]
  - Tachycardia [Unknown]
  - Leukocytosis [Recovered/Resolved]
  - Renal failure acute [Recovering/Resolving]
  - Renal failure chronic [Recovering/Resolving]
  - Hyperparathyroidism [Unknown]
  - Bipolar disorder [Unknown]
  - Type 2 diabetes mellitus [Unknown]
  - Hypertension [Unknown]
  - Hypothyroidism [Unknown]
  - Gastrooesophageal reflux disease [Unknown]
  - Hyperkalaemia [Recovered/Resolved]
  - Diarrhoea [Unknown]
  - Chills [Unknown]
  - Hyponatraemia [Unknown]
